FAERS Safety Report 17416656 (Version 1)
Quarter: 2020Q1

REPORT INFORMATION
  Report Type: Spontaneous
  Country: US (occurrence: US)
  Receive Date: 20200214
  Receipt Date: 20200214
  Transmission Date: 20200409
  Serious: No
  Sender: FDA-Public Use
  Company Number: US-SA-2020SA037429

PATIENT
  Sex: Female

DRUGS (1)
  1. DUPIXENT [Suspect]
     Active Substance: DUPILUMAB
     Indication: PRURITUS
     Dosage: UNK UNK, QOW

REACTIONS (5)
  - Memory impairment [Unknown]
  - Product use in unapproved indication [Unknown]
  - Periorbital swelling [Unknown]
  - Stress [Unknown]
  - Condition aggravated [Unknown]
